FAERS Safety Report 23271473 (Version 1)
Quarter: 2023Q4

REPORT INFORMATION
  Report Type: Spontaneous
  Country: GB (occurrence: DE)
  Receive Date: 20231207
  Receipt Date: 20231207
  Transmission Date: 20240109
  Serious: Yes (Life-Threatening, Hospitalization)
  Sender: FDA-Public Use
  Company Number: None

PATIENT
  Age: 17 Year
  Sex: Female
  Weight: 105 kg

DRUGS (2)
  1. ARIPIPRAZOLE [Suspect]
     Active Substance: ARIPIPRAZOLE
     Indication: Product used for unknown indication
     Dosage: UNKNOWN
     Route: 065
  2. FOLIC ACID [Concomitant]
     Active Substance: FOLIC ACID
     Indication: Vitamin supplementation
     Dosage: UNKNOWN
     Route: 065

REACTIONS (6)
  - Medication error [Unknown]
  - Maternal exposure during pregnancy [Unknown]
  - Compulsive shopping [Not Recovered/Not Resolved]
  - Condition aggravated [Unknown]
  - Head banging [Unknown]
  - Binge eating [Unknown]

NARRATIVE: CASE EVENT DATE: 20231025
